FAERS Safety Report 9600994 (Version 2)
Quarter: 2013Q4

REPORT INFORMATION
  Report Type: Spontaneous
  Country: US (occurrence: US)
  Receive Date: 20131004
  Receipt Date: 20131004
  Transmission Date: 20140711
  Serious: No
  Sender: FDA-Public Use
  Company Number: US-AMGEN-USASP2013037462

PATIENT
  Age: 52 Year
  Sex: Female
  Weight: 81.63 kg

DRUGS (9)
  1. ENBREL [Suspect]
     Indication: PRODUCT USED FOR UNKNOWN INDICATION
     Dosage: 50 MG, WEEKLY
     Route: 058
  2. NORVASC [Concomitant]
     Dosage: 10 MG, UNK
  3. ARAVA [Concomitant]
     Dosage: 20 MG, UNK
  4. FOLBIC [Concomitant]
     Dosage: UNK
  5. PENTOXIFYLLINE [Concomitant]
     Dosage: 400 MG,  ER UNK
  6. LIPITOR [Concomitant]
     Dosage: 20 MG, UNK
  7. PRILOSEC                           /00661201/ [Concomitant]
     Dosage: 10 MG, UNK
  8. APAP W/HYDROCODONE [Concomitant]
     Dosage: 2.5-325
  9. HEADACHE POWDER [Concomitant]
     Dosage: UNK

REACTIONS (6)
  - Injection site erythema [Unknown]
  - Injection site induration [Not Recovered/Not Resolved]
  - Injection site swelling [Unknown]
  - Injection site pain [Not Recovered/Not Resolved]
  - Injection site reaction [Unknown]
  - Injection site inflammation [Unknown]
